FAERS Safety Report 5510925-1 (Version None)
Quarter: 2007Q4

REPORT INFORMATION
  Report Type: 
  Country: None (occurrence: None)
  Receive Date: 20071106
  Receipt Date: 20071106
  Transmission Date: 20080405
  Serious: Yes (Other)
  Sender: FDA-Public Use
  Company Number: None

PATIENT
  Age: 27 Year
  Sex: Female
  Weight: 123.832 kg

DRUGS (1)
  1. LISINOPRIL 40 MG WATSON [Suspect]
     Dosage: 40 MG 1X TIME DAILY PO
     Route: 048
     Dates: start: 20071018, end: 20071104

REACTIONS (3)
  - COUGH [None]
  - DIARRHOEA [None]
  - MUSCLE SPASMS [None]
